FAERS Safety Report 8933976 (Version 1)
Quarter: 2012Q4

REPORT INFORMATION
  Report Type: 
  Country: US (occurrence: US)
  Receive Date: 20121129
  Receipt Date: 20121129
  Transmission Date: 20130627
  Serious: Yes (Other)
  Sender: FDA-Public Use
  Company Number: US-PFIZER INC-2012296854

PATIENT
  Age: 83 Year
  Sex: Male
  Weight: 72.56 kg

DRUGS (7)
  1. VIAGRA [Suspect]
     Indication: ERECTILE DYSFUNCTION
     Dosage: UNK, two to three times a month as needed
     Route: 048
  2. VIAGRA [Suspect]
     Dosage: 50 mg, as needed
     Route: 048
  3. VIAGRA [Suspect]
     Dosage: 100 mg, as needed (two times a month)
     Route: 048
  4. LISINOPRIL [Concomitant]
     Indication: BLOOD PRESSURE HIGH
     Dosage: 10 mg, daily
  5. METOPROLOL [Concomitant]
     Indication: BLOOD PRESSURE HIGH
     Dosage: 50 mg, daily
  6. LOVASTATIN [Concomitant]
     Indication: HIGH CHOLESTEROL
     Dosage: 20 mg, daily
  7. ACTOS [Concomitant]
     Indication: TYPE 2 DIABETES MELLITUS
     Dosage: 45 mg, daily

REACTIONS (1)
  - Genital disorder male [Unknown]
